FAERS Safety Report 8458663-X (Version None)
Quarter: 2012Q2

REPORT INFORMATION
  Report Type: 
  Country: None (occurrence: None)
  Receive Date: 20120622
  Receipt Date: 20120614
  Transmission Date: 20120825
  Serious: Yes (Hospitalization)
  Sender: FDA-Public Use
  Company Number: US-BAYER-2011-103111

PATIENT
  Age: 28 Year
  Sex: Female
  Weight: 61.224 kg

DRUGS (7)
  1. ADVIL PM [Concomitant]
     Dosage: UNK UNK, PRN
  2. YAZ [Suspect]
     Dosage: UNK
     Dates: start: 20040101, end: 20090801
  3. YASMIN [Suspect]
     Dosage: UNK
     Dates: start: 20040101, end: 20060101
  4. XANAX [Concomitant]
     Indication: ANXIETY
     Dosage: 0.25 MG, TID, PRN
     Dates: start: 20090701, end: 20090701
  5. LUNESTA [Concomitant]
     Indication: INSOMNIA
     Dosage: 3 MG, UNK
  6. DEXTROAMPHETAMINE [Concomitant]
     Dosage: 10 MG, QD
  7. VALTREX [Concomitant]
     Dosage: 500 MG, QD

REACTIONS (9)
  - INJURY [None]
  - CHEST PAIN [None]
  - PULMONARY INFARCTION [None]
  - DYSPNOEA [None]
  - NON-CARDIAC CHEST PAIN [None]
  - TOTAL LUNG CAPACITY DECREASED [None]
  - DYSPNOEA EXERTIONAL [None]
  - HAEMOPTYSIS [None]
  - PULMONARY EMBOLISM [None]
